FAERS Safety Report 10019585 (Version 4)
Quarter: 2014Q2

REPORT INFORMATION
  Report Type: Report from Study
  Country: CO (occurrence: CO)
  Receive Date: 20140318
  Receipt Date: 20140605
  Transmission Date: 20141212
  Serious: Yes (Disabling)
  Sender: FDA-Public Use
  Company Number: PHHY2014CO014613

PATIENT
  Age: 45 Year
  Sex: Female
  Weight: 64 kg

DRUGS (5)
  1. GILENYA [Suspect]
     Indication: MULTIPLE SCLEROSIS
     Dosage: 0.5 MG, QD
     Route: 048
     Dates: start: 20131017
  2. PREGABALIN [Concomitant]
     Indication: NEURALGIA
     Dosage: 75 MG, BID
     Dates: start: 201201
  3. ESCITALOPRAM [Concomitant]
     Indication: DEPRESSION
     Dosage: 20 MG, UNK
     Dates: start: 201208
  4. VITAMIN D3 [Concomitant]
     Indication: MULTIPLE SCLEROSIS
     Dosage: 2000 U, UNK
     Dates: start: 201103
  5. ASCORBIC ACID [Concomitant]
     Indication: PH URINE DECREASED
     Dosage: 3000 MG, UNK
     Dates: start: 201208

REACTIONS (6)
  - Furuncle [Not Recovered/Not Resolved]
  - Skin lesion [Not Recovered/Not Resolved]
  - Erythema [Recovered/Resolved]
  - Skin warm [Recovered/Resolved]
  - Oedema peripheral [Recovered/Resolved]
  - Limb injury [Recovered/Resolved]
